FAERS Safety Report 7342189-0 (Version None)
Quarter: 2011Q1

REPORT INFORMATION
  Report Type: 
  Country: None (occurrence: None)
  Receive Date: 20110309
  Receipt Date: 20110224
  Transmission Date: 20110831
  Serious: Yes (Hospitalization)
  Sender: FDA-Public Use
  Company Number: DE-MYLANLABS-2011S1004003

PATIENT
  Sex: Female

DRUGS (6)
  1. PHENYTOIN [Suspect]
     Indication: EPILEPSY
     Dosage: LOADING DOSE GIVEN OVER 1 HOUR.
     Route: 042
  2. TOPIRAMATE [Suspect]
     Indication: EPILEPSY
     Route: 065
  3. PHENYTOIN [Suspect]
     Route: 065
  4. LEVETIRACETAM [Concomitant]
     Indication: EPILEPSY
     Route: 065
  5. LEVETIRACETAM [Concomitant]
     Route: 065
  6. VALPROIC ACID [Suspect]
     Indication: EPILEPSY
     Route: 065

REACTIONS (5)
  - COMA [None]
  - PARESIS [None]
  - GRAND MAL CONVULSION [None]
  - TOXICITY TO VARIOUS AGENTS [None]
  - MYOCLONUS [None]
